FAERS Safety Report 24119942 (Version 1)
Quarter: 2024Q3

REPORT INFORMATION
  Report Type: Spontaneous
  Country: US (occurrence: None)
  Receive Date: 20240718
  Receipt Date: 20240718
  Transmission Date: 20241016
  Serious: Yes (Life-Threatening)
  Sender: Public
  Company Number: None

PATIENT
  Age: 8 Year
  Sex: Male
  Weight: 49.5 kg

DRUGS (3)
  1. MONTELUKAST [Suspect]
     Active Substance: MONTELUKAST SODIUM
     Indication: Asthma
     Dates: start: 20190214, end: 20200615
  2. ALBUTEROL [Concomitant]
     Active Substance: ALBUTEROL
  3. PULMICORT TURBUHALER [Concomitant]
     Active Substance: BUDESONIDE

REACTIONS (4)
  - Self-destructive behaviour [None]
  - Sleep terror [None]
  - Suicidal ideation [None]
  - Cerebral disorder [None]

NARRATIVE: CASE EVENT DATE: 20200615
